FAERS Safety Report 21372990 (Version 2)
Quarter: 2022Q4

REPORT INFORMATION
  Report Type: Report from Study
  Country: CO (occurrence: CO)
  Receive Date: 20220924
  Receipt Date: 20221002
  Transmission Date: 20230113
  Serious: Yes (Hospitalization, Other)
  Sender: FDA-Public Use
  Company Number: CO-JNJFOC-20220925773

PATIENT
  Age: 65 Year
  Sex: Male
  Weight: 68 kg

DRUGS (1)
  1. IMBRUVICA [Suspect]
     Active Substance: IBRUTINIB
     Indication: Mantle cell lymphoma
     Route: 048
     Dates: start: 20191210

REACTIONS (6)
  - Cerebrovascular accident [Not Recovered/Not Resolved]
  - Coma [Recovered/Resolved]
  - Paralysis [Not Recovered/Not Resolved]
  - Blood glucose increased [Unknown]
  - Cerebrovascular accident [Not Recovered/Not Resolved]
  - Hypertension [Not Recovered/Not Resolved]

NARRATIVE: CASE EVENT DATE: 20220906
